FAERS Safety Report 26098027 (Version 1)
Quarter: 2025Q4

REPORT INFORMATION
  Report Type: Spontaneous
  Country: TR (occurrence: TR)
  Receive Date: 20251127
  Receipt Date: 20251127
  Transmission Date: 20260117
  Serious: Yes (Other)
  Sender: B. BRAUN MEDICAL INC.
  Company Number: TR-B. Braun Medical Inc.-TR-BBM-202504525

PATIENT
  Age: 17 Year
  Sex: Male

DRUGS (1)
  1. ACETAMINOPHEN [Suspect]
     Active Substance: ACETAMINOPHEN

REACTIONS (3)
  - Intentional overdose [Unknown]
  - Nephropathy toxic [Unknown]
  - Vomiting [Unknown]
